FAERS Safety Report 10328279 (Version 2)
Quarter: 2014Q3

REPORT INFORMATION
  Report Type: Spontaneous
  Country: US (occurrence: US)
  Receive Date: 20140721
  Receipt Date: 20140721
  Transmission Date: 20150326
  Serious: Yes (Other)
  Sender: FDA-Public Use
  Company Number: US-AMGEN-USASP2014040997

PATIENT
  Age: 59 Year
  Sex: Female

DRUGS (1)
  1. ENBREL [Suspect]
     Active Substance: ETANERCEPT
     Indication: RHEUMATOID ARTHRITIS
     Dosage: 25 MG TWICE EVERY 5 TO 7 DAYS
     Route: 065
     Dates: start: 20000228

REACTIONS (11)
  - Vasculitis [Not Recovered/Not Resolved]
  - Wound [Recovered/Resolved]
  - Adverse event [Unknown]
  - Bronchitis [Recovered/Resolved]
  - Pertussis [Recovered/Resolved]
  - Infection [Unknown]
  - Injection site erythema [Recovered/Resolved]
  - Limb injury [Recovered/Resolved]
  - Impaired healing [Recovered/Resolved]
  - Injection site induration [Not Recovered/Not Resolved]
  - Injection site bruising [Not Recovered/Not Resolved]

NARRATIVE: CASE EVENT DATE: 201309
